FAERS Safety Report 8461547-4 (Version None)
Quarter: 2012Q2

REPORT INFORMATION
  Report Type: 
  Country: None (occurrence: None)
  Receive Date: 20120625
  Receipt Date: 20120613
  Transmission Date: 20120825
  Serious: Yes (Other)
  Sender: FDA-Public Use
  Company Number: PHHY2012DE042173

PATIENT
  Sex: Male

DRUGS (6)
  1. MOXONIDINE [Suspect]
     Indication: HYPERTENSION
     Dosage: UNK UKN, UNK (TWICE A DAY)
     Route: 048
  2. METFORMIN HCL [Concomitant]
     Indication: DIABETES MELLITUS
     Dosage: 1000 MG, BID
  3. SANDOSTATIN LAR [Suspect]
     Indication: PANCREATIC NEUROENDOCRINE TUMOUR
     Dosage: 30 MG, UNK
     Route: 030
  4. ZOMETA [Suspect]
     Indication: METASTASES TO BONE
     Dosage: 3.5 MG/5 ML, QMO
     Dates: end: 20120401
  5. NORVASC [Suspect]
     Indication: HYPERTENSION
     Dosage: 5 MG, BID
     Route: 048
  6. PROPIVERINE [Suspect]
     Indication: URINARY INCONTINENCE
     Dosage: 15 MG, DAILY
     Route: 048
     Dates: start: 20120601

REACTIONS (4)
  - CIRCULATORY COLLAPSE [None]
  - HYPOTENSION [None]
  - FLUID INTAKE REDUCED [None]
  - DEHYDRATION [None]
